FAERS Safety Report 6675206-1 (Version None)
Quarter: 2010Q2

REPORT INFORMATION
  Report Type: 
  Country: None (occurrence: None)
  Receive Date: 20100409
  Receipt Date: 20100405
  Transmission Date: 20101027
  Serious: Yes (Death)
  Sender: FDA-Public Use
  Company Number: US-GILEAD-2010-0028253

PATIENT
  Sex: Female
  Weight: 77.18 kg

DRUGS (19)
  1. LETAIRIS [Suspect]
     Indication: PULMONARY ARTERIAL HYPERTENSION
     Route: 048
     Dates: start: 20080728
  2. REVATIO [Concomitant]
  3. SPIRONOLACTONE [Concomitant]
  4. DIAMOX SRC [Concomitant]
  5. DIGOXIN [Concomitant]
  6. XOPENEX [Concomitant]
  7. AMARYL [Concomitant]
  8. PROCRIT [Concomitant]
  9. LOVENOX [Concomitant]
  10. AMBIEN [Concomitant]
     Route: 048
  11. DURAGESIC-100 [Concomitant]
     Route: 061
  12. ALLEGRA [Concomitant]
  13. CALCITRIOL [Concomitant]
  14. EVISTA [Concomitant]
  15. CYTOMEL [Concomitant]
  16. SERTRALINE HCL [Concomitant]
  17. BENTYL [Concomitant]
  18. METOCLOPRAMIDE HYDROCHLORIDE [Concomitant]
  19. ZINC SULFATE [Concomitant]
     Route: 048

REACTIONS (1)
  - CHRONIC OBSTRUCTIVE PULMONARY DISEASE [None]
